FAERS Safety Report 8584648-9 (Version None)
Quarter: 2012Q3

REPORT INFORMATION
  Report Type: 
  Country: None (occurrence: None)
  Receive Date: 20120802
  Receipt Date: 20120802
  Transmission Date: 20120928
  Serious: Yes (Hospitalization)
  Sender: FDA-Public Use
  Company Number: None

PATIENT
  Age: 53 Year
  Sex: Male
  Weight: 100 kg

DRUGS (3)
  1. LITHIUM CARBONATE [Suspect]
     Indication: BIPOLAR DISORDER
     Dosage: 900 MG BID PO
     Route: 048
     Dates: start: 20111019
  2. LITHIUM CARBONATE [Suspect]
     Indication: MANIA
     Dosage: 900 MG BID PO
     Route: 048
     Dates: start: 20111019
  3. LISINOPRIL [Suspect]
     Indication: HYPERTENSION
     Dosage: 2.5 MG EVERY DAY PO
     Route: 048
     Dates: start: 20061123

REACTIONS (13)
  - DRY MOUTH [None]
  - BLOOD SODIUM DECREASED [None]
  - DYSARTHRIA [None]
  - HYPOAESTHESIA [None]
  - MUSCLE TWITCHING [None]
  - TOXICITY TO VARIOUS AGENTS [None]
  - HYPOTENSION [None]
  - TREMOR [None]
  - POLYURIA [None]
  - THIRST [None]
  - VOMITING [None]
  - HYPONATRAEMIA [None]
  - DIZZINESS [None]
